FAERS Safety Report 8540462-1 (Version None)
Quarter: 2012Q3

REPORT INFORMATION
  Report Type: 
  Country: None (occurrence: None)
  Receive Date: 20120726
  Receipt Date: 20120719
  Transmission Date: 20120928
  Serious: Yes (Hospitalization)
  Sender: FDA-Public Use
  Company Number: DE-ABBOTT-12P-062-0958205-00

PATIENT
  Sex: Male

DRUGS (4)
  1. PANTOPRAZOLE [Concomitant]
     Indication: PRODUCT USED FOR UNKNOWN INDICATION
  2. MESALAMINE [Concomitant]
     Indication: CROHN'S DISEASE
  3. HUMIRA [Suspect]
     Indication: CROHN'S DISEASE
     Route: 058
     Dates: start: 20090526, end: 20120515
  4. PREDNISOLONE [Concomitant]
     Indication: CROHN'S DISEASE

REACTIONS (3)
  - INTESTINAL STENOSIS [None]
  - ILEUS [None]
  - DRUG INEFFECTIVE [None]
